FAERS Safety Report 6528012-2 (Version None)
Quarter: 2010Q1

REPORT INFORMATION
  Report Type: 
  Country: None (occurrence: None)
  Receive Date: 20100106
  Receipt Date: 20091222
  Transmission Date: 20100710
  Serious: Yes (Hospitalization, Other)
  Sender: FDA-Public Use
  Company Number: US-PFIZER INC-2009312941

PATIENT
  Age: 71 Year
  Sex: Male

DRUGS (6)
  1. GABAPENTIN [Suspect]
     Indication: NEURALGIA
     Dosage: 300 MG, 4X/DAY
  2. ATORVASTATIN CALCIUM [Concomitant]
  3. ATENOLOL [Concomitant]
  4. ASPIRIN [Concomitant]
  5. CALCIUM ACETATE [Concomitant]
  6. VANCOMYCIN [Concomitant]

REACTIONS (3)
  - DRUG TOXICITY [None]
  - HALLUCINATION, VISUAL [None]
  - MENTAL STATUS CHANGES [None]
